FAERS Safety Report 10101879 (Version 2)
Quarter: 2014Q2

REPORT INFORMATION
  Report Type: Spontaneous
  Country: RO (occurrence: RO)
  Receive Date: 20140424
  Receipt Date: 20140528
  Transmission Date: 20141212
  Serious: Yes (Death, Other)
  Sender: FDA-Public Use
  Company Number: RO-BAXTER-2014BAX019329

PATIENT
  Age: 3 Year
  Sex: Male

DRUGS (4)
  1. KIOVIG 100 MG/ML SOLUTION FOR INFUSION [Suspect]
     Indication: ENCEPHALITIS
     Route: 042
  2. KIOVIG 100 MG/ML SOLUTION FOR INFUSION [Suspect]
     Indication: OFF LABEL USE
  3. ACYCLOVIR [Concomitant]
     Indication: ENCEPHALITIS
     Route: 065
  4. INSULIN [Concomitant]
     Indication: DIABETIC KETOACIDOSIS
     Route: 065

REACTIONS (2)
  - Drug ineffective [Not Recovered/Not Resolved]
  - Herpes zoster meningoencephalitis [Fatal]
